FAERS Safety Report 4646616-9 (Version None)
Quarter: 2005Q2

REPORT INFORMATION
  Report Type: 
  Country: None (occurrence: None)
  Receive Date: 20050427
  Receipt Date: 20050208
  Transmission Date: 20051028
  Serious: No
  Sender: FDA-Public Use
  Company Number: US-GLAXOSMITHKLINE-A0544532A

PATIENT
  Age: 4 Year
  Sex: Male

DRUGS (5)
  1. FLOVENT [Suspect]
     Indication: ASTHMA
     Dosage: 2PUFF TWICE PER DAY
     Route: 055
     Dates: start: 20041116, end: 20050207
  2. SINGULAIR [Concomitant]
  3. NASONEX [Concomitant]
  4. SALINE SOLUTION [Concomitant]
  5. MULTI-VITAMINS [Concomitant]

REACTIONS (4)
  - EYE PRURITUS [None]
  - MOOD ALTERED [None]
  - PHARMACEUTICAL PRODUCT COMPLAINT [None]
  - RASH [None]
